FAERS Safety Report 5336897-0 (Version None)
Quarter: 2007Q2

REPORT INFORMATION
  Report Type: 
  Country: None (occurrence: None)
  Receive Date: 20070524
  Receipt Date: 20070524
  Transmission Date: 20071010
  Serious: Yes (Disabling)
  Sender: FDA-Public Use
  Company Number: None

PATIENT
  Age: 72 Year
  Sex: Male

DRUGS (1)
  1. ERTAPENEM 1 GM MERCK [Suspect]
     Indication: SEPSIS
     Dosage: 1 GM ONCE DAILY IV BOLUS
     Route: 040
     Dates: start: 20070205, end: 20070209

REACTIONS (3)
  - PARTIAL SEIZURES [None]
  - PNEUMONIA [None]
  - SEPSIS [None]
